FAERS Safety Report 7418555-1 (Version None)
Quarter: 2011Q2

REPORT INFORMATION
  Report Type: 
  Country: None (occurrence: None)
  Receive Date: 20110415
  Receipt Date: 20110406
  Transmission Date: 20111010
  Serious: Yes (Hospitalization)
  Sender: FDA-Public Use
  Company Number: PHHY2011CA29005

PATIENT
  Sex: Female

DRUGS (1)
  1. SANDOSTATIN LAR [Suspect]
     Indication: CARCINOID SYNDROME
     Dosage: 40 MG, QMO
     Route: 030
     Dates: start: 20090326

REACTIONS (4)
  - INTESTINAL OBSTRUCTION [None]
  - ABDOMINAL PAIN [None]
  - SYNCOPE [None]
  - LOSS OF CONSCIOUSNESS [None]
